FAERS Safety Report 19647342 (Version 1)
Quarter: 2021Q3

REPORT INFORMATION
  Report Type: Report from Study
  Country: IT (occurrence: IT)
  Receive Date: 20210802
  Receipt Date: 20210802
  Transmission Date: 20211014
  Serious: Yes (Hospitalization)
  Sender: FDA-Public Use
  Company Number: IT-PFIZER INC-202100940737

PATIENT
  Age: 33 Year
  Sex: Female

DRUGS (3)
  1. MIRTAZAPINE. [Suspect]
     Active Substance: MIRTAZAPINE
  2. XANAX [Suspect]
     Active Substance: ALPRAZOLAM
  3. DAPAROX [PAROXETINE MESILATE] [Suspect]
     Active Substance: PAROXETINE MESYLATE

REACTIONS (2)
  - Dry mouth [Recovering/Resolving]
  - Burning sensation [Recovering/Resolving]

NARRATIVE: CASE EVENT DATE: 20210123
